FAERS Safety Report 17969607 (Version 1)
Quarter: 2020Q3

REPORT INFORMATION
  Report Type: Spontaneous
  Country: US (occurrence: US)
  Receive Date: 20200701
  Receipt Date: 20200701
  Transmission Date: 20201103
  Serious: No
  Sender: FDA-Public Use
  Company Number: US-GW PHARMA-202003USGW02313

PATIENT

DRUGS (1)
  1. EPIDIOLEX [Suspect]
     Active Substance: CANNABIDIOL
     Indication: SEIZURE
     Dosage: UNK
     Route: 048

REACTIONS (5)
  - Eating disorder [Recovered/Resolved]
  - Constipation [Unknown]
  - Seizure [Unknown]
  - Lethargy [Recovered/Resolved]
  - Eczema [Unknown]
